FAERS Safety Report 4736912-9 (Version None)
Quarter: 2005Q3

REPORT INFORMATION
  Report Type: 
  Country: None (occurrence: None)
  Receive Date: 20050808
  Receipt Date: 20050804
  Transmission Date: 20060218
  Serious: Yes (Death, Hospitalization)
  Sender: FDA-Public Use
  Company Number: US-SANOFI-SYNTHELABO-F01200501446

PATIENT
  Age: 82 Year
  Sex: Male

DRUGS (8)
  1. OXALIPLATIN [Suspect]
     Indication: COLON CANCER METASTATIC
     Route: 042
     Dates: start: 20050610, end: 20050610
  2. CAPECITABINE [Suspect]
     Route: 048
     Dates: start: 20050610, end: 20050624
  3. BEVACIZUMAB [Concomitant]
     Route: 065
     Dates: start: 20050629, end: 20050629
  4. ARANESP [Concomitant]
     Dosage: UNK
     Route: 065
     Dates: start: 20050610
  5. IRON [Concomitant]
     Dosage: UNK
     Route: 065
  6. VITAMIN B-12 [Concomitant]
     Dosage: UNK
     Route: 065
  7. VITAMIN E [Concomitant]
     Dosage: UNK
     Route: 065
  8. CALCIUM GLUCONATE [Concomitant]
     Dosage: UNK
     Route: 065

REACTIONS (7)
  - DIARRHOEA [None]
  - HYPOTENSION [None]
  - METABOLIC ACIDOSIS [None]
  - PNEUMONIA ASPIRATION [None]
  - RESPIRATORY DISTRESS [None]
  - SEPTIC SHOCK [None]
  - VOMITING [None]
